FAERS Safety Report 8702668 (Version 2)
Quarter: 2012Q4

REPORT INFORMATION
  Report Type: Report from Study
  Country: PL (occurrence: PL)
  Receive Date: 20120803
  Receipt Date: 20120925
  Transmission Date: 20130627
  Serious: Yes (Disabling)
  Sender: FDA-Public Use
  Company Number: PL-CELGENEUS-129-C5013-12072605

PATIENT
  Age: 59 Year
  Sex: Male
  Weight: 91 kg

DRUGS (10)
  1. LENALIDOMIDE [Suspect]
     Indication: PROSTATE CANCER
     Dosage: 25 Milligram
     Route: 048
     Dates: start: 20110726, end: 20110815
  2. CC-5013 [Suspect]
     Dosage: 25 Milligram
     Route: 048
     Dates: start: 20111109, end: 20111122
  3. DOCETAXEL [Suspect]
     Indication: PROSTATE CANCER
     Route: 041
     Dates: start: 20110726, end: 20110726
  4. DOCETAXEL [Suspect]
     Route: 041
     Dates: start: 20120426, end: 20120426
  5. PREDNISONE [Suspect]
     Indication: PROSTATE CANCER
     Dosage: 10 Gram
     Route: 065
     Dates: start: 20110726, end: 20110815
  6. PREDNISONE [Suspect]
     Dosage: 10 Gram
     Route: 065
     Dates: start: 20120426, end: 20120517
  7. TERTENSIF SR [Concomitant]
     Indication: HYPERTENSION
     Dosage: 15 Microgram
     Route: 048
     Dates: start: 201112
  8. BETO 50 ZK [Concomitant]
     Indication: HYPERTENSION
     Dosage: 50 Milligram
     Route: 048
     Dates: start: 201112
  9. LACIPIL [Concomitant]
     Indication: DRUG USE FOR UNKNOWN INDICATION
     Dosage: 4 Milligram
     Route: 048
     Dates: start: 2011
  10. PRINIVIL [Concomitant]
     Indication: HYPERTENSION
     Dosage: 5 Milligram
     Route: 048
     Dates: start: 201112

REACTIONS (1)
  - Bladder transitional cell carcinoma [Not Recovered/Not Resolved]
